FAERS Safety Report 10168205 (Version 1)
Quarter: 2014Q2

REPORT INFORMATION
  Report Type: Spontaneous
  Country: US (occurrence: US)
  Receive Date: 20140512
  Receipt Date: 20140512
  Transmission Date: 20141212
  Serious: No
  Sender: FDA-Public Use
  Company Number: US-ASTRAZENECA-2013SE91859

PATIENT
  Age: 56 Year
  Sex: Female
  Weight: 70.8 kg

DRUGS (5)
  1. FASLODEX [Suspect]
     Indication: BREAST CANCER
     Route: 030
     Dates: start: 20131111
  2. FASLODEX [Suspect]
     Indication: BREAST CANCER
     Route: 030
     Dates: start: 20131126
  3. FASLODEX [Suspect]
     Indication: BREAST CANCER
     Route: 030
     Dates: start: 20131212
  4. TAMOXIFEN [Suspect]
     Indication: BREAST CANCER
     Dosage: DAILY
     Route: 065
     Dates: start: 201110, end: 201112
  5. FEMARA [Suspect]
     Route: 065
     Dates: start: 2012, end: 2012

REACTIONS (9)
  - Abdominal distension [Unknown]
  - Adverse drug reaction [Unknown]
  - Bone pain [Unknown]
  - Dyspnoea [Unknown]
  - Fatigue [Unknown]
  - Nausea [Unknown]
  - Constipation [Unknown]
  - Gastrointestinal disorder [Unknown]
  - Headache [Unknown]
